FAERS Safety Report 7268285-4 (Version None)
Quarter: 2011Q1

REPORT INFORMATION
  Report Type: 
  Country: None (occurrence: None)
  Receive Date: 20110201
  Receipt Date: 20110125
  Transmission Date: 20110831
  Serious: Yes (Other)
  Sender: FDA-Public Use
  Company Number: US-PFIZER INC-2011017690

PATIENT
  Sex: Female
  Weight: 77.098 kg

DRUGS (3)
  1. TRAMADOL [Suspect]
     Dosage: UNK
  2. CELEBREX [Suspect]
     Indication: ARTHRITIS
     Dosage: 200 MG, 2X/DAY
     Route: 048
  3. CELEBREX [Suspect]
     Indication: PAIN

REACTIONS (4)
  - MENTAL IMPAIRMENT [None]
  - ROAD TRAFFIC ACCIDENT [None]
  - MEMORY IMPAIRMENT [None]
  - ADVERSE DRUG REACTION [None]
